FAERS Safety Report 21332416 (Version 1)
Quarter: 2022Q3

REPORT INFORMATION
  Report Type: Spontaneous
  Country: DE (occurrence: DE)
  Receive Date: 20220914
  Receipt Date: 20220914
  Transmission Date: 20221026
  Serious: Yes (Hospitalization)
  Sender: FDA-Public Use
  Company Number: DE-drreddys-LIT/GER/22/0154534

PATIENT
  Age: 30 Year
  Sex: Female

DRUGS (6)
  1. ARIPIPRAZOLE [Suspect]
     Active Substance: ARIPIPRAZOLE
     Indication: Schizophrenia
  2. QUETIAPINE [Interacting]
     Active Substance: QUETIAPINE
     Indication: Schizophrenia
  3. QUETIAPINE [Interacting]
     Active Substance: QUETIAPINE
  4. CARIPRAZINE [Interacting]
     Active Substance: CARIPRAZINE
     Indication: Condition aggravated
  5. CARIPRAZINE [Interacting]
     Active Substance: CARIPRAZINE
  6. CARIPRAZINE [Interacting]
     Active Substance: CARIPRAZINE
     Dosage: REDUCED TO 1.5 MG/DAY

REACTIONS (3)
  - Schizophrenia [Unknown]
  - Drug interaction [Unknown]
  - Extrapyramidal disorder [Unknown]
